FAERS Safety Report 19063225 (Version 1)
Quarter: 2021Q1

REPORT INFORMATION
  Report Type: Spontaneous
  Country: CN (occurrence: CN)
  Receive Date: 20210326
  Receipt Date: 20210326
  Transmission Date: 20210420
  Serious: Yes (Other)
  Sender: FDA-Public Use
  Company Number: CN-ASTRAZENECA-2021A184724

PATIENT
  Age: 28125 Day
  Sex: Male

DRUGS (2)
  1. IPRATROPIUM BROMIDE. [Suspect]
     Active Substance: IPRATROPIUM BROMIDE
     Indication: TRACHEAL STENOSIS
     Route: 055
     Dates: start: 20210225, end: 20210227
  2. BUDESONIDE. [Suspect]
     Active Substance: BUDESONIDE
     Indication: TRACHEAL STENOSIS
     Route: 055
     Dates: start: 20210225, end: 20210227

REACTIONS (1)
  - Asthma [Recovering/Resolving]

NARRATIVE: CASE EVENT DATE: 20210227
